FAERS Safety Report 5164739-5 (Version None)
Quarter: 2006Q4

REPORT INFORMATION
  Report Type: 
  Country: None (occurrence: None)
  Receive Date: 20061205
  Receipt Date: 20020827
  Transmission Date: 20070319
  Serious: Yes (Life-Threatening)
  Sender: FDA-Public Use
  Company Number: FR-GLAXOSMITHKLINE-B0278633A

PATIENT
  Age: 43 Year
  Sex: Male

DRUGS (8)
  1. EPIVIR [Suspect]
     Indication: HIV INFECTION
     Route: 048
     Dates: start: 20020201, end: 20020628
  2. BACTRIM [Suspect]
     Route: 048
  3. KALETRA [Concomitant]
     Indication: HIV INFECTION
     Route: 048
     Dates: start: 20000101, end: 20010801
  4. TENOFOVIR [Concomitant]
     Indication: HIV INFECTION
     Route: 065
     Dates: start: 20010701, end: 20010801
  5. NORVIR [Concomitant]
     Indication: HIV INFECTION
     Route: 048
     Dates: start: 20020101
  6. ZIAGEN [Concomitant]
     Indication: HIV INFECTION
     Route: 048
     Dates: start: 20000101, end: 20010801
  7. AGENERASE [Concomitant]
     Indication: HIV INFECTION
     Route: 048
     Dates: start: 20020101
  8. ZIAGEN [Concomitant]
     Dates: start: 20020101

REACTIONS (7)
  - ACNE [None]
  - COOMBS TEST POSITIVE [None]
  - HAEMOLYTIC ANAEMIA [None]
  - HAPTOGLOBIN DECREASED [None]
  - INFLAMMATION [None]
  - LIVER DISORDER [None]
  - PYREXIA [None]
